FAERS Safety Report 10245916 (Version 1)
Quarter: 2014Q2

REPORT INFORMATION
  Report Type: Report from Study
  Country: DE (occurrence: DE)
  Receive Date: 20140619
  Receipt Date: 20140619
  Transmission Date: 20141212
  Serious: Yes (Hospitalization)
  Sender: FDA-Public Use
  Company Number: DE-BRISTOL-MYERS SQUIBB COMPANY-21018148

PATIENT
  Age: 52 Year
  Sex: Male
  Weight: 83 kg

DRUGS (9)
  1. BELATACEPT [Suspect]
     Indication: RENAL TRANSPLANT
  2. EVEROLIMUS [Suspect]
     Indication: RENAL TRANSPLANT
  3. MYCOPHENOLATE MOFETIL [Suspect]
     Indication: RENAL TRANSPLANT
  4. MYCOPHENOLATE SODIUM [Suspect]
     Indication: RENAL TRANSPLANT
  5. PREDNISONE [Suspect]
     Indication: RENAL TRANSPLANT
  6. SIROLIMUS [Suspect]
     Indication: RENAL TRANSPLANT
  7. TACROLIMUS [Suspect]
     Indication: RENAL TRANSPLANT
  8. CICLOSPORIN [Suspect]
     Indication: RENAL TRANSPLANT
  9. MICARDIS [Concomitant]
     Indication: HYPERTENSION
     Dates: start: 20100907

REACTIONS (1)
  - Coronary artery disease [Unknown]
